FAERS Safety Report 7767783-4 (Version None)
Quarter: 2011Q3

REPORT INFORMATION
  Report Type: 
  Country: None (occurrence: None)
  Receive Date: 20110922
  Receipt Date: 20110609
  Transmission Date: 20111222
  Serious: No
  Sender: FDA-Public Use
  Company Number: US-ASTRAZENECA-2010SE05653

PATIENT
  Age: 51 Year
  Sex: Male
  Weight: 95.3 kg

DRUGS (9)
  1. SEROQUEL [Suspect]
     Route: 048
  2. SEROQUEL [Suspect]
     Route: 048
  3. LAMICTAL [Concomitant]
  4. SEROQUEL [Suspect]
     Indication: SCHIZOAFFECTIVE DISORDER
     Route: 048
  5. SEROQUEL [Suspect]
     Route: 048
  6. MORPHINE [Concomitant]
  7. PERCOCET [Concomitant]
  8. SEROQUEL [Suspect]
     Indication: BIPOLAR DISORDER
     Route: 048
  9. SEROQUEL [Suspect]
     Route: 048

REACTIONS (9)
  - PSYCHOTIC DISORDER [None]
  - MALAISE [None]
  - FALL [None]
  - BACK INJURY [None]
  - INCORRECT DOSE ADMINISTERED [None]
  - ILL-DEFINED DISORDER [None]
  - DELUSIONAL PERCEPTION [None]
  - DRUG DOSE OMISSION [None]
  - STRESS AT WORK [None]
